FAERS Safety Report 8120274-3 (Version None)
Quarter: 2012Q1

REPORT INFORMATION
  Report Type: 
  Country: None (occurrence: None)
  Receive Date: 20120207
  Receipt Date: 20120126
  Transmission Date: 20120608
  Serious: Yes (Other)
  Sender: FDA-Public Use
  Company Number: CHPA2012US002227

PATIENT
  Age: 59 Year
  Sex: Female

DRUGS (1)
  1. EXCEDRIN EXTRA STRENGTH TABLETS [Suspect]
     Indication: BACK PAIN
     Dosage: OFF AND ON, FOR 25-30 YEARS OR SO
     Route: 048

REACTIONS (6)
  - SKIN DISCOLOURATION [None]
  - PRURITUS [None]
  - LICHEN PLANUS [None]
  - RASH [None]
  - SKIN LESION [None]
  - OFF LABEL USE [None]
